FAERS Safety Report 19942864 (Version 1)
Quarter: 2021Q4

REPORT INFORMATION
  Report Type: Spontaneous
  Country: US (occurrence: US)
  Receive Date: 20211007
  Receipt Date: 20211007
  Transmission Date: 20220303
  Serious: Yes (Other)
  Sender: FDA-Public Use
  Company Number: None

PATIENT
  Age: 34 Year
  Sex: Female
  Weight: 67.13 kg

DRUGS (1)
  1. PREGABALIN [Suspect]
     Active Substance: PREGABALIN
     Indication: Fibromyalgia
     Dosage: ?          OTHER DOSE:225 MG PREGABALIN ;
     Route: 048
     Dates: start: 202011, end: 202110

REACTIONS (2)
  - Product substitution issue [None]
  - Treatment failure [None]
